FAERS Safety Report 9980560 (Version 1)
Quarter: 2014Q1

REPORT INFORMATION
  Report Type: Spontaneous
  Country: CA (occurrence: CA)
  Receive Date: 20140307
  Receipt Date: 20140307
  Transmission Date: 20141002
  Serious: Yes (Other)
  Sender: FDA-Public Use
  Company Number: CA-ROCHE-1358450

PATIENT
  Sex: Female

DRUGS (7)
  1. XELODA [Suspect]
     Indication: BREAST CANCER
     Route: 048
     Dates: start: 201311, end: 20140215
  2. HERCEPTIN [Suspect]
     Indication: BREAST CANCER
     Route: 042
     Dates: start: 201311, end: 201401
  3. FASLODEX [Suspect]
     Indication: PRODUCT USED FOR UNKNOWN INDICATION
     Dosage: RECEIVED 3 TREATMENTS
     Route: 065
     Dates: start: 2013
  4. PLAVIX [Concomitant]
     Route: 065
     Dates: start: 2011
  5. ATACAND [Concomitant]
     Route: 065
     Dates: start: 2006
  6. TAXOL [Concomitant]
     Route: 065
     Dates: start: 201105
  7. TAMOXIFEN [Concomitant]
     Route: 065
     Dates: start: 2012

REACTIONS (3)
  - Hypersensitivity [Unknown]
  - Breast ulceration [Unknown]
  - Madarosis [Unknown]
